FAERS Safety Report 8041624-2 (Version None)
Quarter: 2012Q1

REPORT INFORMATION
  Report Type: 
  Country: None (occurrence: None)
  Receive Date: 20120112
  Receipt Date: 20120105
  Transmission Date: 20120608
  Serious: Yes (Hospitalization)
  Sender: FDA-Public Use
  Company Number: JP-EISAI INC-E7389-01915-CLI-JP

PATIENT
  Sex: Female
  Weight: 40 kg

DRUGS (29)
  1. HYSDRON-H [Concomitant]
     Indication: BREAST CANCER RECURRENT
  2. HYSDRON-H [Concomitant]
  3. NEOPHAGEN [Concomitant]
     Indication: PROPHYLAXIS
     Dosage: UNKNOWN
     Route: 041
  4. LANSOPRAZOLE [Concomitant]
     Indication: PROPHYLAXIS
     Dosage: UNKNOWN
     Route: 048
  5. PRECOAT [Concomitant]
     Dosage: UNKNOWN
     Route: 048
  6. MAGNESIUM SULFATE [Concomitant]
     Indication: CONSTIPATION
     Dosage: UNKNOWN
     Route: 048
  7. HALAVEN [Suspect]
     Indication: METASTASES TO LUNG
  8. ZOMETA [Concomitant]
     Indication: METASTASES TO BONE
     Dosage: UNKNOWN
     Route: 041
  9. INKALBON [Concomitant]
     Indication: CONSTIPATION
     Dosage: UNKNOWN
  10. HALAVEN [Suspect]
     Indication: BREAST CANCER RECURRENT
     Route: 041
     Dates: start: 20110804
  11. CELESTAMINE TAB [Concomitant]
     Indication: PROPHYLAXIS
     Dosage: UNKNOWN
     Route: 048
  12. SUPELZON [Concomitant]
     Indication: PROPHYLAXIS
     Dosage: UNKNOWN
     Route: 041
  13. HALAVEN [Suspect]
     Indication: METASTASES TO LIVER
  14. ALVIATIN [Concomitant]
     Indication: PROPHYLAXIS
     Dosage: UNKNOWN
     Route: 048
  15. HYSDRON-H [Concomitant]
     Dosage: UNKNOWN
     Route: 048
     Dates: start: 20100603
  16. CODEINE PHOSPHATE HYDRATE [Concomitant]
     Dosage: UNKNOWN
     Route: 048
  17. HALAVEN [Suspect]
  18. FUROSEMIDE [Concomitant]
     Dosage: UNKNOWN
     Route: 041
  19. DECADRON [Concomitant]
     Indication: PROPHYLAXIS
     Dosage: UNKNOWN
     Route: 041
  20. GLYCEOL [Concomitant]
     Dosage: UNKNOWN
     Route: 065
  21. FLOKISYL [Concomitant]
     Indication: PROPHYLAXIS
     Dosage: UNKNOWN
     Route: 048
  22. PACIF [Concomitant]
     Dosage: UNKNOWN
     Route: 048
  23. ELIETEN [Concomitant]
     Indication: PROPHYLAXIS
     Dosage: UNKNOWN
     Route: 048
  24. HALAVEN [Suspect]
     Indication: METASTASES TO BONE
  25. FAMOTIDINE [Concomitant]
     Indication: PROPHYLAXIS
     Dosage: UNKNOWN
     Route: 041
  26. GRANISETRON [Concomitant]
     Indication: PROPHYLAXIS
     Dosage: UNKNOWN
     Route: 041
  27. AZUNOL [Concomitant]
     Indication: PROPHYLAXIS
     Dosage: UNKNOWN
     Route: 065
  28. LOXOMARIN [Concomitant]
     Dosage: UNKNOWN
     Route: 048
  29. TPN ELECTROLYTES IN PLASTIC CONTAINER [Concomitant]
     Indication: MALNUTRITION

REACTIONS (3)
  - LEUKOPENIA [None]
  - LYMPHOPENIA [None]
  - NEUTROPENIA [None]
